FAERS Safety Report 18314323 (Version 3)
Quarter: 2021Q1

REPORT INFORMATION
  Report Type: Report from Study
  Country: None (occurrence: US)
  Receive Date: 20200926
  Receipt Date: 20210223
  Transmission Date: 20210419
  Serious: Yes (Hospitalization, Other)
  Sender: FDA-Public Use
  Company Number: US-ABBVIE-20K-163-3471542-00

PATIENT
  Age: 71 Year
  Sex: Female
  Weight: 76.27 kg

DRUGS (7)
  1. MODERNA COVID?19 VACCINE [Concomitant]
     Active Substance: CX-024414
     Dosage: MODERNA
     Route: 030
     Dates: start: 20210125, end: 20210125
  2. HUMIRA [Suspect]
     Active Substance: ADALIMUMAB
     Indication: PERICARDITIS
  3. HUMIRA [Suspect]
     Active Substance: ADALIMUMAB
     Indication: CROHN^S DISEASE
     Route: 058
     Dates: start: 202006, end: 202012
  4. HUMIRA [Suspect]
     Active Substance: ADALIMUMAB
     Indication: RHEUMATOID ARTHRITIS
  5. HUMIRA [Suspect]
     Active Substance: ADALIMUMAB
     Indication: ARTHRALGIA
  6. MODERNA COVID?19 VACCINE [Concomitant]
     Active Substance: CX-024414
     Indication: COVID-19 IMMUNISATION
     Dosage: MODERNA
     Route: 030
     Dates: start: 20201228, end: 20201228
  7. REMICADE [Concomitant]
     Active Substance: INFLIXIMAB
     Indication: ANTIBODY TEST POSITIVE

REACTIONS (11)
  - Pericarditis [Not Recovered/Not Resolved]
  - Mental impairment [Unknown]
  - Tracheitis [Recovered/Resolved]
  - Chest discomfort [Unknown]
  - Dyspnoea [Unknown]
  - Inflammation [Unknown]
  - Fatigue [Recovered/Resolved]
  - Cardiac tamponade [Unknown]
  - Pneumonitis [Unknown]
  - Anxiety [Unknown]
  - Pyrexia [Recovered/Resolved]

NARRATIVE: CASE EVENT DATE: 2020
